FAERS Safety Report 24176924 (Version 2)
Quarter: 2024Q3

REPORT INFORMATION
  Report Type: Spontaneous
  Country: GB (occurrence: GB)
  Receive Date: 20240806
  Receipt Date: 20240828
  Transmission Date: 20241016
  Serious: Yes (Other)
  Sender: CELLTRION
  Company Number: GB-CELLTRION INC.-2024GB018487

PATIENT

DRUGS (2)
  1. YUFLYMA [Suspect]
     Active Substance: ADALIMUMAB-AATY
     Indication: Rheumatoid arthritis
     Dosage: 40MG PEN PK2
     Route: 058
     Dates: start: 202405
  2. YUFLYMA [Suspect]
     Active Substance: ADALIMUMAB-AATY
     Dosage: 40MG PEN PK2
     Route: 058
     Dates: start: 202407

REACTIONS (5)
  - Rheumatoid arthritis [Not Recovered/Not Resolved]
  - Blood pressure decreased [Unknown]
  - Sensory disturbance [Unknown]
  - Vertigo [Unknown]
  - Dizziness [Unknown]
